FAERS Safety Report 7493354-3 (Version None)
Quarter: 2011Q2

REPORT INFORMATION
  Report Type: 
  Country: None (occurrence: None)
  Receive Date: 20110519
  Receipt Date: 20110519
  Transmission Date: 20111010
  Serious: Yes (Other)
  Sender: FDA-Public Use
  Company Number: None

PATIENT
  Age: 16 Year
  Sex: Male
  Weight: 52.3 kg

DRUGS (3)
  1. SYNTHROID [Concomitant]
  2. SAIZEN [Suspect]
     Indication: HYPOPITUITARISM
     Dosage: 2.2MG QD SQ
     Route: 058
     Dates: start: 20051130, end: 20110411
  3. CORTEF [Concomitant]

REACTIONS (1)
  - DESMOID TUMOUR [None]
